FAERS Safety Report 24585403 (Version 1)
Quarter: 2024Q4

REPORT INFORMATION
  Report Type: Spontaneous
  Country: US (occurrence: US)
  Receive Date: 20241106
  Receipt Date: 20241106
  Transmission Date: 20250115
  Serious: No
  Sender: Harrow Health
  Company Number: US-IMP-2024000914

PATIENT
  Sex: Female

DRUGS (1)
  1. VEVYE [Suspect]
     Active Substance: CYCLOSPORINE
     Indication: Product used for unknown indication
     Route: 047

REACTIONS (3)
  - Eye irritation [Recovered/Resolved]
  - Eye pruritus [Recovered/Resolved]
  - Eye pain [Recovered/Resolved]
